FAERS Safety Report 4537843-X (Version None)
Quarter: 2004Q4

REPORT INFORMATION
  Report Type: 
  Country: None (occurrence: None)
  Receive Date: 20041224
  Receipt Date: 20030113
  Transmission Date: 20050328
  Serious: Yes (Life-Threatening, Hospitalization, Disabling)
  Sender: FDA-Public Use
  Company Number: US-MERCK-0301USA01091

PATIENT
  Age: 60 Year
  Sex: Female
  Weight: 90 kg

DRUGS (6)
  1. VIOXX [Suspect]
     Indication: ARTHRALGIA
     Route: 048
     Dates: start: 20010323, end: 20020515
  2. BENADRYL [Concomitant]
     Route: 065
  3. ANACIN [Concomitant]
     Route: 065
  4. ZANTAC [Concomitant]
     Route: 065
  5. PROTONIX [Concomitant]
     Route: 065
  6. SURFAK [Concomitant]
     Route: 065

REACTIONS (14)
  - ABDOMINAL PAIN LOWER [None]
  - ANAL FISSURE [None]
  - ANAL SKIN TAGS [None]
  - ANXIETY DISORDER [None]
  - CHEST PAIN [None]
  - CONSTIPATION [None]
  - DEPRESSION [None]
  - DIVERTICULITIS [None]
  - DYSARTHRIA [None]
  - DYSPNOEA [None]
  - FIBROCYSTIC BREAST DISEASE [None]
  - HYPERTENSION [None]
  - ISCHAEMIC STROKE [None]
  - RECTAL ULCER [None]
